FAERS Safety Report 9329075 (Version 3)
Quarter: 2013Q4

REPORT INFORMATION
  Report Type: Spontaneous
  Country: US (occurrence: US)
  Receive Date: 20130604
  Receipt Date: 20131003
  Transmission Date: 20140711
  Serious: Yes (Death)
  Sender: FDA-Public Use
  Company Number: US-GLAXOSMITHKLINE-A1025069A

PATIENT
  Age: 64 Year
  Sex: Male

DRUGS (1)
  1. VOTRIENT [Suspect]
     Indication: RENAL CELL CARCINOMA
     Dosage: 800MG ALTERNATE DAYS
     Route: 048
     Dates: start: 20130118, end: 20130422

REACTIONS (3)
  - Renal cancer [Not Recovered/Not Resolved]
  - Renal cancer metastatic [Fatal]
  - Metastatic neoplasm [Fatal]
